FAERS Safety Report 9747305 (Version 2)
Quarter: 2014Q1

REPORT INFORMATION
  Report Type: Spontaneous
  Country: AT (occurrence: AT)
  Receive Date: 20131212
  Receipt Date: 20140314
  Transmission Date: 20141002
  Serious: Yes (Other)
  Sender: FDA-Public Use
  Company Number: AT-AMGEN-AUTSP2013086884

PATIENT
  Age: 66 Year
  Sex: Male

DRUGS (9)
  1. XGEVA [Suspect]
     Indication: METASTASES TO BONE
     Dosage: UNK
     Route: 065
     Dates: start: 2013
  2. XGEVA [Suspect]
     Indication: PROPHYLAXIS
  3. ELIGARD [Concomitant]
     Dosage: 22.5 MG, Q3MO
  4. NILUTAMIDE [Concomitant]
     Dosage: 50 MG, UNK
  5. PREDNISOLON                        /00016201/ [Concomitant]
     Dosage: 5 MG, UNK
  6. SEROPRAM                           /00582602/ [Concomitant]
     Dosage: 20 MG, UNK
  7. ZANIDIP [Concomitant]
     Dosage: 10 MG, UNK
  8. FUROSTAD [Concomitant]
     Dosage: 10 MG, UNK
  9. RAMIPRIL [Concomitant]
     Dosage: 10 MG, UNK

REACTIONS (1)
  - Osteonecrosis of jaw [Recovered/Resolved]
